FAERS Safety Report 8695617 (Version 3)
Quarter: 2013Q4

REPORT INFORMATION
  Report Type: Spontaneous
  Country: US (occurrence: US)
  Receive Date: 20120731
  Receipt Date: 20131003
  Transmission Date: 20140711
  Serious: Yes (Hospitalization)
  Sender: FDA-Public Use
  Company Number: US-B.I. PHARMACEUTICALS,INC./RIDGEFIELD-2012-BP-17020BP

PATIENT
  Sex: Male

DRUGS (18)
  1. SPIRIVA [Suspect]
     Indication: CHRONIC OBSTRUCTIVE PULMONARY DISEASE
     Dosage: 18 MCG
     Route: 055
     Dates: start: 2010
  2. FLOMAX CAPSULES [Suspect]
     Indication: URINE FLOW DECREASED
     Dosage: 0.4 MG
     Dates: start: 2011
  3. LEVOTHYROXINE [Concomitant]
     Indication: THYROID DISORDER
     Dosage: 88 MCG
  4. ASPIRIN [Concomitant]
  5. COUMADIN [Concomitant]
  6. DIOVAN [Concomitant]
     Indication: BLOOD PRESSURE
  7. VENTOLIN HFA [Concomitant]
     Indication: DYSPNOEA
  8. NITROGLYCERIN [Concomitant]
     Indication: CARDIAC DISORDER
  9. OMEPRAZOLE [Concomitant]
     Indication: GASTROOESOPHAGEAL REFLUX DISEASE
  10. GLIMEPIRIDE [Concomitant]
     Indication: GLUCOSE TOLERANCE IMPAIRED
  11. SIMETHICONE [Concomitant]
     Indication: FLATULENCE
  12. BUMETANIDE [Concomitant]
     Indication: DIURETIC THERAPY
  13. FORADIL [Concomitant]
     Indication: PROSTATOMEGALY
     Route: 055
  14. FORADIL [Concomitant]
     Indication: CHRONIC OBSTRUCTIVE PULMONARY DISEASE
  15. METOPROLOL [Concomitant]
     Indication: BLOOD PRESSURE
  16. LIPITOR [Concomitant]
     Indication: BLOOD CHOLESTEROL INCREASED
  17. ALBUTEROL [Concomitant]
     Indication: DYSPNOEA
     Dosage: INHALATION SOLUTION AEROSOL, 2.5/3ML 0.083,
     Route: 055
  18. ALBUTEROL [Concomitant]
     Indication: CHRONIC OBSTRUCTIVE PULMONARY DISEASE

REACTIONS (5)
  - Haematuria [Recovered/Resolved]
  - Urinary tract infection [Recovered/Resolved]
  - Urine flow decreased [Recovered/Resolved]
  - Drug ineffective [Not Recovered/Not Resolved]
  - Product quality issue [Unknown]
